FAERS Safety Report 17764721 (Version 5)
Quarter: 2020Q3

REPORT INFORMATION
  Report Type: Spontaneous
  Country: US (occurrence: US)
  Receive Date: 20200511
  Receipt Date: 20200831
  Transmission Date: 20201102
  Serious: Yes (Other)
  Sender: FDA-Public Use
  Company Number: US-009507513-2005USA002618

PATIENT
  Age: 62 Year
  Sex: Female

DRUGS (2)
  1. HYZAAR [Suspect]
     Active Substance: HYDROCHLOROTHIAZIDE\LOSARTAN POTASSIUM
     Indication: HYPERTENSION
     Dosage: 1 TABLET DAILY, STRENGTH:100/12.5(UNITS UNSPECIFIED)
     Route: 048
     Dates: start: 2010
  2. ASPIRIN. [Concomitant]
     Active Substance: ASPIRIN
     Dosage: UNK

REACTIONS (9)
  - Intentional product misuse [Unknown]
  - Poor quality product administered [Unknown]
  - Extra dose administered [Unknown]
  - Cerebrovascular accident [Unknown]
  - Vaginal infection [Unknown]
  - Product odour abnormal [Unknown]
  - Product odour abnormal [Unknown]
  - Product packaging issue [Unknown]
  - Product use issue [Unknown]

NARRATIVE: CASE EVENT DATE: 2011
